FAERS Safety Report 7601193-5 (Version None)
Quarter: 2011Q3

REPORT INFORMATION
  Report Type: 
  Country: None (occurrence: None)
  Receive Date: 20110711
  Receipt Date: 20110615
  Transmission Date: 20111222
  Serious: Yes (Other)
  Sender: FDA-Public Use
  Company Number: US-GLAXOSMITHKLINE-A0936156A

PATIENT
  Sex: Female

DRUGS (1)
  1. AVANDIA [Suspect]
     Indication: DIABETES MELLITUS
     Dosage: 8MG PER DAY
     Route: 048

REACTIONS (6)
  - MYOCARDIAL INFARCTION [None]
  - HEART RATE INCREASED [None]
  - CARDIAC FLUTTER [None]
  - ELECTROCARDIOGRAM QT PROLONGED [None]
  - DEPRESSION [None]
  - PALPITATIONS [None]
